FAERS Safety Report 20127455 (Version 1)
Quarter: 2021Q4

REPORT INFORMATION
  Report Type: Report from Study
  Country: FR (occurrence: FR)
  Receive Date: 20211129
  Receipt Date: 20211129
  Transmission Date: 20220303
  Serious: Yes (Hospitalization)
  Sender: FDA-Public Use
  Company Number: FR-JNJFOC-20201122338

PATIENT
  Age: 68 Year
  Sex: Male
  Weight: 78.7 kg

DRUGS (5)
  1. DEXAMETHASONE [Suspect]
     Active Substance: DEXAMETHASONE
     Indication: Plasma cell myeloma
     Dosage: UNK
     Route: 065
  2. ADRIAMYCIN [Suspect]
     Active Substance: DOXORUBICIN HYDROCHLORIDE
     Indication: Plasma cell myeloma
     Dosage: 30 MILLIGRAM/SQ. METER
     Route: 042
     Dates: start: 20201002
  3. VELCADE [Suspect]
     Active Substance: BORTEZOMIB
     Indication: Plasma cell myeloma
     Dosage: 1.3 MILLIGRAM/SQ. METER, BIWEEKLY
     Route: 065
     Dates: start: 20201002, end: 20201009
  4. SODIUM CHLORIDE [Concomitant]
     Active Substance: SODIUM CHLORIDE
     Indication: Renal failure
     Dosage: UNK (START DATE: 10-NOV-2020)
     Route: 065
     Dates: end: 20201111
  5. SODIUM BICARBONATE [Concomitant]
     Active Substance: SODIUM BICARBONATE
     Indication: Renal failure
     Dosage: UNK (START DATE: 10-NOV-2020)
     Route: 065
     Dates: end: 20201111

REACTIONS (2)
  - Haematuria [Not Recovered/Not Resolved]
  - Venous thrombosis [Unknown]

NARRATIVE: CASE EVENT DATE: 20201010
